FAERS Safety Report 12460003 (Version 2)
Quarter: 2016Q3

REPORT INFORMATION
  Report Type: Spontaneous
  Country: US (occurrence: US)
  Receive Date: 20160613
  Receipt Date: 20160714
  Transmission Date: 20161109
  Serious: No
  Sender: FDA-Public Use
  Company Number: US-PFIZER INC-2016268891

PATIENT
  Age: 24 Year
  Sex: Male

DRUGS (2)
  1. T4 [Concomitant]
     Active Substance: LEVOTHYROXINE
     Dosage: UNK
  2. CYTOMEL [Suspect]
     Active Substance: LIOTHYRONINE SODIUM
     Indication: AUTOIMMUNE THYROIDITIS
     Dosage: CUT THE 25MCG TABLETS IN HALF AND TAKES MULTIPLE TIMES A DAY

REACTIONS (3)
  - Wrong technique in product usage process [Unknown]
  - Malaise [Unknown]
  - Condition aggravated [Unknown]
